FAERS Safety Report 15963117 (Version 1)
Quarter: 2019Q1

REPORT INFORMATION
  Report Type: Spontaneous
  Country: US (occurrence: US)
  Receive Date: 20190214
  Receipt Date: 20190214
  Transmission Date: 20190417
  Serious: No
  Sender: FDA-Public Use
  Company Number: US-ALLERGAN-1850543US

PATIENT
  Sex: Male

DRUGS (1)
  1. TAZORAC [Suspect]
     Active Substance: TAZAROTENE
     Indication: SKIN PAPILLOMA
     Dosage: UNK
     Route: 065
     Dates: start: 201809

REACTIONS (1)
  - Off label use [Unknown]
